FAERS Safety Report 12648308 (Version 7)
Quarter: 2016Q4

REPORT INFORMATION
  Report Type: Report from Study
  Country: None (occurrence: BE)
  Receive Date: 20160812
  Receipt Date: 20161121
  Transmission Date: 20170207
  Serious: Yes (Hospitalization)
  Sender: FDA-Public Use
  Company Number: BE-ABBVIE-16K-013-1698748-00

PATIENT
  Sex: Female

DRUGS (5)
  1. DUODOPA [Suspect]
     Active Substance: CARBIDOPA\LEVODOPA
     Dosage: DOSAGE CONTINUOUSLY MONITORED AND ADJUSTED
     Route: 050
     Dates: start: 20110209, end: 20160415
  2. DUODOPA [Suspect]
     Active Substance: CARBIDOPA\LEVODOPA
     Dosage: AM DOSE=3ML; CD=3ML/H DURING 16HRS AND ED=1.5ML
     Route: 050
     Dates: start: 20160415, end: 20161011
  3. DUODOPA [Suspect]
     Active Substance: CARBIDOPA\LEVODOPA
     Dosage: AM= 3 ML; CD= 2.9 ML/H DURING 16 HRS; ED= 1.5 ML
     Route: 050
     Dates: start: 20161011, end: 20161110
  4. DUODOPA [Suspect]
     Active Substance: CARBIDOPA\LEVODOPA
     Dosage: AM= 3 ML; CD= 2.7 ML/H DURING 16 HRS; ED= 1.5 ML
     Route: 050
     Dates: start: 20161110
  5. DUODOPA [Suspect]
     Active Substance: CARBIDOPA\LEVODOPA
     Indication: PARKINSON^S DISEASE
     Dosage: AM DOSE=2ML; CD=3ML/H DURING 16HRS; ED=2ML; ND=2ML/H DURING 8HRS
     Route: 050
     Dates: start: 20110207, end: 20110209

REACTIONS (6)
  - Dyskinesia [Not Recovered/Not Resolved]
  - Confusional state [Not Recovered/Not Resolved]
  - Agitation [Unknown]
  - Cognitive disorder [Unknown]
  - Femoral neck fracture [Unknown]
  - Fall [Recovered/Resolved]

NARRATIVE: CASE EVENT DATE: 2016
